FAERS Safety Report 10070920 (Version 3)
Quarter: 2014Q2

REPORT INFORMATION
  Report Type: Spontaneous
  Country: US (occurrence: US)
  Receive Date: 20140410
  Receipt Date: 20140513
  Transmission Date: 20141212
  Serious: Yes (Hospitalization, Other)
  Sender: FDA-Public Use
  Company Number: ALCN2014US002301

PATIENT
  Age: 46 Year
  Sex: Female

DRUGS (8)
  1. PREDNISOLONE ACETATE [Suspect]
     Indication: UVEITIS
     Dosage: 1 GTT, QH
     Route: 047
     Dates: start: 201311
  2. PREDNISOLONE ACETATE [Suspect]
     Dosage: 1 GTT, BID
     Route: 047
     Dates: start: 20140409
  3. DORZOLAMIDE,TIMOLOL [Suspect]
     Dosage: UNK
  4. COMBIGAN [Concomitant]
     Indication: GLAUCOMA
     Dosage: 1 GTT, BID
     Route: 047
     Dates: start: 201311
  5. FLURBIPROFEN [Concomitant]
     Indication: UVEITIS
     Dosage: 1 DF, QID
     Route: 047
     Dates: start: 201311
  6. TEGRETAL [Concomitant]
     Indication: EPILEPSY
     Dosage: 3 DF, BID
     Route: 048
  7. PHENOBARBITAL [Concomitant]
     Indication: EPILEPSY
     Dosage: 1 DF, QD
     Route: 048
  8. KEPPRA [Concomitant]
     Indication: EPILEPSY
     Dosage: 1 DF, QD
     Route: 048

REACTIONS (9)
  - Blood sodium decreased [Recovered/Resolved]
  - Headache [Not Recovered/Not Resolved]
  - Nausea [Not Recovered/Not Resolved]
  - Abdominal pain upper [Not Recovered/Not Resolved]
  - Back pain [Not Recovered/Not Resolved]
  - Poor quality sleep [Not Recovered/Not Resolved]
  - Chest pain [Not Recovered/Not Resolved]
  - Pain [Not Recovered/Not Resolved]
  - Vision blurred [Not Recovered/Not Resolved]
